FAERS Safety Report 6126847-1 (Version None)
Quarter: 2009Q1

REPORT INFORMATION
  Report Type: 
  Country: None (occurrence: None)
  Receive Date: 20090318
  Receipt Date: 20090303
  Transmission Date: 20090719
  Serious: Yes (Death)
  Sender: FDA-Public Use
  Company Number: 2009162760

PATIENT
  Age: 66 Year
  Sex: Male

DRUGS (4)
  1. DALTEPARIN SODIUM [Suspect]
     Dates: end: 20090124
  2. MORPHINE [Concomitant]
  3. LANSOPRAZOLE [Concomitant]
  4. DEXAMETHASONE TAB [Concomitant]

REACTIONS (10)
  - ABDOMINAL TENDERNESS [None]
  - BLOOD PRESSURE DECREASED [None]
  - BRADYCARDIA [None]
  - CARDIAC ARREST [None]
  - CHEYNE-STOKES RESPIRATION [None]
  - HAEMORRHAGE [None]
  - RESPIRATORY ARREST [None]
  - SUPRAVENTRICULAR EXTRASYSTOLES [None]
  - TACHYCARDIA [None]
  - UNRESPONSIVE TO STIMULI [None]
